FAERS Safety Report 12193676 (Version 1)
Quarter: 2016Q1

REPORT INFORMATION
  Report Type: Spontaneous
  Country: US (occurrence: ZA)
  Receive Date: 20160321
  Receipt Date: 20160321
  Transmission Date: 20160526
  Serious: Yes (Other)
  Sender: FDA-Public Use
  Company Number: US-CIPLA LTD.-2016ZA02640

PATIENT

DRUGS (11)
  1. ZANTAR [Suspect]
     Active Substance: UNSPECIFIED INGREDIENT
     Dosage: 100 MG, MANE
     Route: 065
  2. DONEPEZIL. [Suspect]
     Active Substance: DONEPEZIL
     Indication: DEMENTIA ALZHEIMER^S TYPE
     Dosage: 10 MG, QD, MANE
  3. DONEPEZIL. [Suspect]
     Active Substance: DONEPEZIL
     Indication: PARKINSON^S DISEASE
  4. OXPOLA [Suspect]
     Active Substance: PRAMIPEXOLE DIHYDROCHLORIDE
     Dosage: 0.125 MG, UNK
     Route: 065
  5. MONTE-AIR [Suspect]
     Active Substance: MONTELUKAST SODIUM
     Dosage: 10 MG, PRN
     Route: 065
  6. URIMAX [Suspect]
     Active Substance: TAMSULOSIN HYDROCHLORIDE
     Dosage: 4 MG, MANE
     Route: 065
  7. EUTHYROX [Suspect]
     Active Substance: LEVOTHYROXINE SODIUM
     Dosage: 1 MCG, UNK
     Route: 065
  8. ASPEN TRAZADONE [Suspect]
     Active Substance: TRAZODONE HYDROCHLORIDE
     Dosage: 50 MG, NOCTE
     Route: 065
  9. URBANOL [Suspect]
     Active Substance: CLOBAZAM
     Dosage: 5 MG, PRN
     Route: 065
  10. DORMONOCT [Suspect]
     Active Substance: LOPRAZOLAM
     Dosage: 2 MG, NOCTE
     Route: 065
  11. ASPIRIN. [Suspect]
     Active Substance: ASPIRIN
     Dosage: 25 MG, MANE
     Route: 065

REACTIONS (2)
  - Pain in extremity [Not Recovered/Not Resolved]
  - Insomnia [Unknown]
